FAERS Safety Report 7236862-2 (Version None)
Quarter: 2011Q1

REPORT INFORMATION
  Report Type: 
  Country: None (occurrence: None)
  Receive Date: 20110120
  Receipt Date: 20110111
  Transmission Date: 20110831
  Serious: Yes (Hospitalization, Disabling)
  Sender: FDA-Public Use
  Company Number: US-MERCK-1008USA01465

PATIENT
  Age: 54 Year
  Sex: Female
  Weight: 49 kg

DRUGS (3)
  1. SYNTHROID [Concomitant]
     Route: 065
     Dates: start: 19940101
  2. FOSAMAX [Suspect]
     Indication: OSTEOPOROSIS
     Route: 048
     Dates: start: 20021029, end: 20060906
  3. FOSAMAX [Suspect]
     Indication: OSTEOPOROSIS PROPHYLAXIS
     Route: 048
     Dates: start: 20021029, end: 20060906

REACTIONS (18)
  - DEGENERATION OF UTERINE LEIOMYOMA [None]
  - ORAL INFECTION [None]
  - WHITE BLOOD CELL COUNT DECREASED [None]
  - OSTEONECROSIS OF JAW [None]
  - FOOT FRACTURE [None]
  - FACIAL BONES FRACTURE [None]
  - UTERINE DISORDER [None]
  - RAYNAUD'S PHENOMENON [None]
  - CONSTIPATION [None]
  - IRRITABLE BOWEL SYNDROME [None]
  - RENAL CYST [None]
  - OSTEOPENIA [None]
  - PERIODONTITIS [None]
  - MITRAL VALVE PROLAPSE [None]
  - IMPAIRED HEALING [None]
  - INJURY [None]
  - TOOTH DISORDER [None]
  - PRIMARY SEQUESTRUM [None]
